FAERS Safety Report 17545761 (Version 1)
Quarter: 2020Q1

REPORT INFORMATION
  Report Type: Spontaneous
  Country: US (occurrence: US)
  Receive Date: 20200306
  Receipt Date: 20200306
  Transmission Date: 20200409
  Serious: Yes (Hospitalization)
  Sender: FDA-Public Use
  Company Number: None

PATIENT
  Age: 69 Year
  Sex: Male

DRUGS (1)
  1. SACUBITRIL/VALSARTAN (SACUBITRIL 97MG/VALSARTAN 103MG TAB) [Suspect]
     Active Substance: SACUBITRIL\VALSARTAN
     Dosage: ?          OTHER STRENGTH:97M/103MG;?
     Dates: start: 20190915

REACTIONS (2)
  - Syncope [None]
  - Accidental overdose [None]

NARRATIVE: CASE EVENT DATE: 20190915
